FAERS Safety Report 21647207 (Version 1)
Quarter: 2022Q4

REPORT INFORMATION
  Report Type: Spontaneous
  Country: US (occurrence: US)
  Receive Date: 20221127
  Receipt Date: 20221127
  Transmission Date: 20230113
  Serious: No
  Sender: FDA-Public Use
  Company Number: US-AMGEN-USASP2022203123

PATIENT
  Age: 79 Year
  Sex: Male

DRUGS (2)
  1. REPATHA [Suspect]
     Active Substance: EVOLOCUMAB
     Indication: Blood cholesterol increased
     Dosage: 420 MILLIGRAM, QMO
     Route: 065
     Dates: start: 202111
  2. REPATHA [Suspect]
     Active Substance: EVOLOCUMAB
     Dosage: 420 MILLIGRAM, Q3WK
     Route: 065

REACTIONS (1)
  - Drug effect less than expected [Unknown]
